FAERS Safety Report 23978686 (Version 1)
Quarter: 2024Q2

REPORT INFORMATION
  Report Type: Spontaneous
  Country: SA (occurrence: SA)
  Receive Date: 20240614
  Receipt Date: 20240614
  Transmission Date: 20240715
  Serious: Yes (Other)
  Sender: FDA-Public Use
  Company Number: SA-ABBVIE-5801281

PATIENT
  Age: 6 Year
  Sex: Female

DRUGS (1)
  1. BOTOX [Suspect]
     Active Substance: ONABOTULINUMTOXINA
     Indication: Strabismus
     Dosage: TIME INTERVAL: AS NECESSARY: BILATERAL
     Route: 065

REACTIONS (1)
  - Strabismus [Unknown]
